FAERS Safety Report 6700978-7 (Version None)
Quarter: 2010Q2

REPORT INFORMATION
  Report Type: 
  Country: None (occurrence: None)
  Receive Date: 20100428
  Receipt Date: 20100419
  Transmission Date: 20101027
  Serious: Yes (Other)
  Sender: FDA-Public Use
  Company Number: GR-PFIZER INC-2009245694

PATIENT
  Sex: Male

DRUGS (6)
  1. LYRICA [Suspect]
     Indication: EPILEPSY
     Dosage: UNK
     Route: 048
     Dates: start: 20090101, end: 20090101
  2. LYRICA [Suspect]
     Indication: TRAUMATIC BRAIN INJURY
  3. ZYPREXA [Concomitant]
     Indication: TRAUMATIC BRAIN INJURY
     Dosage: UNK
     Dates: start: 20090101, end: 20090101
  4. KEPPRA [Concomitant]
     Indication: EPILEPSY
     Dosage: UNK
     Dates: start: 20090101, end: 20090101
  5. KEPPRA [Concomitant]
     Indication: TRAUMATIC BRAIN INJURY
  6. ESCITALOPRAM OXALATE [Concomitant]
     Dosage: UNK
     Dates: start: 20090101

REACTIONS (2)
  - PSYCHOTIC BEHAVIOUR [None]
  - VERTIGO [None]
